FAERS Safety Report 7152811-X (Version None)
Quarter: 2010Q4

REPORT INFORMATION
  Report Type: 
  Country: None (occurrence: None)
  Receive Date: 20101213
  Receipt Date: 20101129
  Transmission Date: 20110411
  Serious: Yes (Hospitalization)
  Sender: FDA-Public Use
  Company Number: PHHY2009US66664

PATIENT
  Sex: Male

DRUGS (5)
  1. EXJADE [Suspect]
     Dosage: 500 MG
  2. EXJADE [Suspect]
     Dosage: 1000 MG
  3. PENICILLIN [Concomitant]
  4. FOLIC ACID [Concomitant]
  5. ALBUTEROL [Concomitant]

REACTIONS (4)
  - CONTUSION [None]
  - MALAISE [None]
  - SICKLE CELL ANAEMIA WITH CRISIS [None]
  - SKIN EXFOLIATION [None]
